FAERS Safety Report 18255238 (Version 2)
Quarter: 2020Q3

REPORT INFORMATION
  Report Type: Report from Study
  Country: ES (occurrence: ES)
  Receive Date: 20200911
  Receipt Date: 20200923
  Transmission Date: 20201103
  Serious: Yes (Other)
  Sender: FDA-Public Use
  Company Number: ES-AMGEN-ESPNI2020144889

PATIENT
  Age: 74 Year
  Sex: Male
  Weight: 71.4 kg

DRUGS (5)
  1. 5 FU [Suspect]
     Active Substance: FLUOROURACIL
     Dosage: 3400 MILLIGRAM, Q2WK
     Route: 042
     Dates: start: 20191121, end: 20200812
  2. FOLINIC ACID [Concomitant]
     Active Substance: LEUCOVORIN
     Indication: COLORECTAL CANCER
     Dosage: 710 MILLIGRAM, Q2WK
     Route: 042
     Dates: start: 20191121, end: 20200812
  3. OXALIPLATIN. [Suspect]
     Active Substance: OXALIPLATIN
     Indication: COLORECTAL CANCER
     Dosage: 120 MILLIGRAM, Q2WK
     Route: 042
     Dates: start: 20191121, end: 20200812
  4. PANITUMUMAB [Suspect]
     Active Substance: PANITUMUMAB
     Indication: COLORECTAL CANCER
     Dosage: 450 MILLIGRAM, Q2WK
     Route: 042
     Dates: start: 20191121, end: 20200812
  5. 5 FU [Suspect]
     Active Substance: FLUOROURACIL
     Indication: COLORECTAL CANCER
     Dosage: 570 MILLIGRAM, Q2WK
     Route: 040
     Dates: start: 20191121, end: 20200812

REACTIONS (2)
  - Neutropenia [Not Recovered/Not Resolved]
  - Platelet count decreased [Not Recovered/Not Resolved]

NARRATIVE: CASE EVENT DATE: 20200824
